FAERS Safety Report 17489561 (Version 1)
Quarter: 2020Q3

REPORT INFORMATION
  Report Type: Report from Study
  Country: US (occurrence: US)
  Receive Date: 20200303
  Receipt Date: 20200303
  Transmission Date: 20201105
  Serious: Yes (Death, Other)
  Sender: FDA-Public Use
  Company Number: US-ROCHE-2554841

PATIENT

DRUGS (10)
  1. METHOTREXATE. [Suspect]
     Active Substance: METHOTREXATE
     Route: 030
  2. MYCOPHENOLATE MOFETIL. [Suspect]
     Active Substance: MYCOPHENOLATE MOFETIL
     Indication: SYSTEMIC LUPUS ERYTHEMATOSUS
     Dosage: {/ 2 G/DAY
     Route: 065
  3. PREDNISONE. [Suspect]
     Active Substance: PREDNISONE
     Indication: SYSTEMIC LUPUS ERYTHEMATOSUS
     Dosage: {/ 40 MG/DAY FOR A MINIMUM OF 2 WEEKS
     Route: 048
  4. METHOTREXATE. [Suspect]
     Active Substance: METHOTREXATE
     Route: 058
  5. MIZORIBINE [Suspect]
     Active Substance: MIZORIBINE
     Indication: SYSTEMIC LUPUS ERYTHEMATOSUS
     Dosage: {/ 150 MG/DAY
     Route: 065
  6. AZATHIOPRINE. [Suspect]
     Active Substance: AZATHIOPRINE
     Indication: SYSTEMIC LUPUS ERYTHEMATOSUS
     Dosage: {/ 200 MG/DAY
     Route: 065
  7. ANIFROLUMAB. [Suspect]
     Active Substance: ANIFROLUMAB
     Indication: SYSTEMIC LUPUS ERYTHEMATOSUS
     Route: 042
  8. ANIFROLUMAB. [Suspect]
     Active Substance: ANIFROLUMAB
     Route: 042
  9. MYCOPHENOLIC ACID. [Suspect]
     Active Substance: MYCOPHENOLIC ACID
     Indication: SYSTEMIC LUPUS ERYTHEMATOSUS
     Dosage: {/ 1.44 G/DAY
     Route: 065
  10. METHOTREXATE. [Suspect]
     Active Substance: METHOTREXATE
     Indication: SYSTEMIC LUPUS ERYTHEMATOSUS
     Dosage: {/ 25 MG/WEEK
     Route: 048

REACTIONS (16)
  - Encephalitis [Fatal]
  - Pneumonia [Fatal]
  - Infection [Unknown]
  - Systemic lupus erythematosus [Unknown]
  - Tuberculosis [Unknown]
  - Influenza [Unknown]
  - Herpes zoster [Unknown]
  - B-cell lymphoma [Unknown]
  - Invasive breast carcinoma [Unknown]
  - Cardiovascular disorder [Unknown]
  - Urinary tract infection [Unknown]
  - Asthma [Unknown]
  - Squamous cell carcinoma of the cervix [Unknown]
  - Squamous cell carcinoma of skin [Unknown]
  - Chest pain [Unknown]
  - Anaphylactic reaction [Unknown]
